APPROVED DRUG PRODUCT: BENZTROPINE MESYLATE
Active Ingredient: BENZTROPINE MESYLATE
Strength: 1MG
Dosage Form/Route: TABLET;ORAL
Application: A090168 | Product #002 | TE Code: AA
Applicant: LEADING PHARMA LLC
Approved: Nov 28, 2012 | RLD: No | RS: No | Type: RX